FAERS Safety Report 14552764 (Version 2)
Quarter: 2018Q1

REPORT INFORMATION
  Report Type: Spontaneous
  Country: US (occurrence: US)
  Receive Date: 20180220
  Receipt Date: 20180308
  Transmission Date: 20180509
  Serious: Yes (Other)
  Sender: FDA-Public Use
  Company Number: US-JNJFOC-20180220627

PATIENT
  Age: 53 Year
  Sex: Male
  Weight: 68.04 kg

DRUGS (3)
  1. FENTANYL. [Suspect]
     Active Substance: FENTANYL
     Indication: LUNG NEOPLASM MALIGNANT
     Route: 062
     Dates: end: 2017
  2. FENTANYL TRANSDERMAL SYSTEM [Suspect]
     Active Substance: FENTANYL
     Indication: LUNG NEOPLASM MALIGNANT
     Dosage: 3-4 MONTHS AGO
     Route: 062
     Dates: start: 2017
  3. HYDROCODEINE [Concomitant]
     Active Substance: DIHYDROCODEINE PHOSPHATE
     Indication: LUNG NEOPLASM MALIGNANT
     Route: 048

REACTIONS (12)
  - Hypokinesia [Unknown]
  - Tremor [Unknown]
  - Anxiety [Not Recovered/Not Resolved]
  - Inappropriate schedule of drug administration [Unknown]
  - Product adhesion issue [Unknown]
  - Surgery [Unknown]
  - Drug ineffective [Unknown]
  - Diabetes mellitus [Not Recovered/Not Resolved]
  - Pain [Not Recovered/Not Resolved]
  - Wrong technique in product usage process [Unknown]
  - Visual impairment [Not Recovered/Not Resolved]
  - Product administered at inappropriate site [Unknown]

NARRATIVE: CASE EVENT DATE: 201706
